FAERS Safety Report 6000155-1 (Version None)
Quarter: 2008Q4

REPORT INFORMATION
  Report Type: 
  Country: None (occurrence: None)
  Receive Date: 20081211
  Receipt Date: 20081125
  Transmission Date: 20090506
  Serious: Yes (Hospitalization)
  Sender: FDA-Public Use
  Company Number: TRP_05995_2008

PATIENT
  Age: 59 Year
  Sex: Female

DRUGS (5)
  1. ADVAFERON [Suspect]
     Indication: HEPATITIS C
     Dosage: 12 MILLION IU (NOT SPECIFIED)
     Dates: start: 20080709, end: 20080101
  2. ADVAFERON [Suspect]
     Indication: HEPATITIS C
     Dosage: 12 MILLION IU (NOT SPECIFIED)
     Dates: start: 20080101
  3. STEROID ANTIBACTERIALS [Concomitant]
  4. MERISLON [Concomitant]
  5. VONTROL [Concomitant]

REACTIONS (2)
  - DIZZINESS [None]
  - ECZEMA [None]
